FAERS Safety Report 8742652 (Version 2)
Quarter: 2013Q4

REPORT INFORMATION
  Report Type: Spontaneous
  Country: US (occurrence: US)
  Receive Date: 20120824
  Receipt Date: 20131101
  Transmission Date: 20140711
  Serious: No
  Sender: FDA-Public Use
  Company Number: US-009507513-1208USA004238

PATIENT
  Age: 20 Year
  Sex: Female

DRUGS (3)
  1. SAPHRIS [Suspect]
     Indication: BIPOLAR DISORDER
     Dosage: 5 MG, QD
     Route: 060
     Dates: start: 20120803
  2. SAPHRIS [Suspect]
     Dosage: HALF THE MEDICATION, QD
     Dates: end: 20120808
  3. LITHIUM [Concomitant]
     Dosage: 400 MG, BID

REACTIONS (2)
  - Local swelling [Unknown]
  - Drug prescribing error [Unknown]
